FAERS Safety Report 9278946 (Version 8)
Quarter: 2015Q2

REPORT INFORMATION
  Report Type: Spontaneous
  Country: US (occurrence: US)
  Receive Date: 20130508
  Receipt Date: 20150429
  Transmission Date: 20150821
  Serious: Yes (Hospitalization, Other)
  Sender: FDA-Public Use
  Company Number: US-GLAXOSMITHKLINE-A1019632A

PATIENT
  Age: 30 Year
  Sex: Female
  Weight: 75 kg

DRUGS (8)
  1. FLOLAN [Suspect]
     Active Substance: EPOPROSTENOL SODIUM
     Dosage: UNK
     Dates: start: 20111006
  2. TRACLEER [Concomitant]
     Active Substance: BOSENTAN\BOSENTAN MONOHYDRATE
  3. FLOLAN [Suspect]
     Active Substance: EPOPROSTENOL SODIUM
     Indication: PULMONARY ARTERIAL HYPERTENSION
     Dosage: VIAL STRENGTH: 1.5 MG
     Route: 065
     Dates: start: 20111006
  4. FLOLAN [Suspect]
     Active Substance: EPOPROSTENOL SODIUM
     Dosage: UNK
     Dates: start: 20111006
  5. REVATIO [Concomitant]
     Active Substance: SILDENAFIL CITRATE
  6. REMODULIN [Concomitant]
     Active Substance: TREPROSTINIL
     Route: 058
  7. FLOLAN [Suspect]
     Active Substance: EPOPROSTENOL SODIUM
     Dosage: 40 NG/KG/MIN, CO
  8. OPSUMIT [Concomitant]
     Active Substance: MACITENTAN

REACTIONS (12)
  - Nasopharyngitis [Recovered/Resolved]
  - Catheter site bruise [Recovered/Resolved]
  - Infusion site infection [Unknown]
  - Contusion [Recovered/Resolved]
  - Road traffic accident [Recovered/Resolved]
  - Pain [Recovered/Resolved]
  - Fatigue [Unknown]
  - Drug administration error [Unknown]
  - Catheter site pain [Unknown]
  - Therapeutic procedure [Unknown]
  - Device related infection [Unknown]
  - Catheter site discharge [Unknown]

NARRATIVE: CASE EVENT DATE: 201303
